FAERS Safety Report 4272878-6 (Version None)
Quarter: 2004Q1

REPORT INFORMATION
  Report Type: 
  Country: None (occurrence: None)
  Receive Date: 20040114
  Receipt Date: 20040105
  Transmission Date: 20041129
  Serious: Yes (Hospitalization, Other)
  Sender: FDA-Public Use
  Company Number: US-SHR-04-019402

PATIENT
  Age: 55 Year
  Sex: Female

DRUGS (1)
  1. BETASERON [Suspect]
     Indication: MULTIPLE SCLEROSIS
     Dosage: 8 MIU, EVERY 2D, SUBCUTANEOUS
     Route: 058
     Dates: start: 20000301

REACTIONS (5)
  - HYDROCEPHALUS [None]
  - INJECTION SITE ERYTHEMA [None]
  - POSTOPERATIVE INFECTION [None]
  - PYREXIA [None]
  - URINARY TRACT INFECTION [None]
